FAERS Safety Report 9001324 (Version 6)
Quarter: 2017Q4

REPORT INFORMATION
  Report Type: Spontaneous
  Country: US (occurrence: US)
  Receive Date: 20130107
  Receipt Date: 20171120
  Transmission Date: 20180321
  Serious: Yes (Hospitalization, Disabling, Other)
  Sender: FDA-Public Use
  Company Number: US-009507513-1301USA000885

PATIENT
  Sex: Female
  Weight: 78.91 kg

DRUGS (4)
  1. ALENDRONATE SODIUM. [Suspect]
     Active Substance: ALENDRONATE SODIUM
     Indication: OSTEOPOROSIS
     Dosage: 70 MG, QW
     Route: 065
     Dates: start: 20080731, end: 201003
  2. AEROBID-M [Concomitant]
     Active Substance: FLUNISOLIDE
     Indication: ASTHMA
     Dosage: UNK
     Dates: start: 1995, end: 2005
  3. FOSAMAX [Suspect]
     Active Substance: ALENDRONATE SODIUM
     Indication: OSTEOPOROSIS
     Dosage: 10 MG, QD
     Route: 048
     Dates: start: 19990325
  4. FOSAMAX [Suspect]
     Active Substance: ALENDRONATE SODIUM
     Dosage: 70 MG, QW
     Route: 048
     Dates: start: 200112, end: 20080730

REACTIONS (32)
  - Breast cancer stage II [Recovered/Resolved]
  - Osteoarthritis [Unknown]
  - Pneumonia [Unknown]
  - Radiotherapy [Unknown]
  - Bundle branch block right [Unknown]
  - Pain [Unknown]
  - Carpal tunnel syndrome [Recovering/Resolving]
  - Osteoporosis [Unknown]
  - Diverticulum intestinal [Unknown]
  - Urinary retention [Unknown]
  - Chronic obstructive pulmonary disease [Not Recovered/Not Resolved]
  - Urinary tract infection enterococcal [Unknown]
  - Deep vein thrombosis [Unknown]
  - Oesophagitis [Unknown]
  - Blood cholesterol increased [Unknown]
  - Myalgia [Unknown]
  - Visual acuity reduced [Unknown]
  - Non-Hodgkin^s lymphoma [Unknown]
  - Deafness [Unknown]
  - Cholecystectomy [Unknown]
  - Femur fracture [Recovered/Resolved]
  - Femur fracture [Recovered/Resolved]
  - Infection [Unknown]
  - Nasopharyngitis [Unknown]
  - Anaemia postoperative [Unknown]
  - Coronary artery disease [Unknown]
  - Low turnover osteopathy [Unknown]
  - Stress fracture [Unknown]
  - Emphysema [Unknown]
  - Arthralgia [Not Recovered/Not Resolved]
  - Cor pulmonale [Unknown]
  - Osteoarthritis [Unknown]

NARRATIVE: CASE EVENT DATE: 2000
